FAERS Safety Report 9188202 (Version 1)
Quarter: 2013Q1

REPORT INFORMATION
  Report Type: Spontaneous
  Country: ES (occurrence: ES)
  Receive Date: 20130325
  Receipt Date: 20130325
  Transmission Date: 20140127
  Serious: Yes (Hospitalization)
  Sender: FDA-Public Use
  Company Number: ES-ELI_LILLY_AND_COMPANY-ES201303008053

PATIENT
  Age: 67 Year
  Sex: Female
  Weight: 65 kg

DRUGS (8)
  1. FORSTEO [Suspect]
     Indication: OSTEOPOROSIS
     Dosage: 20 UG, QD
     Route: 058
     Dates: start: 20090917
  2. PROZAC [Concomitant]
     Indication: ANXIETY
     Dosage: 20 MG, QD
     Route: 048
  3. TRANKIMAZIN [Concomitant]
     Indication: ANXIETY
     Dosage: 1 MG, QD
     Route: 048
  4. XICIL [Concomitant]
     Dosage: 1 SACHET DAILY
     Route: 048
  5. VENORUTON [Concomitant]
     Indication: VARICOSE VEIN
     Dosage: 1 DF, QD
     Route: 048
  6. NOLOTIL [Concomitant]
     Indication: PAIN
     Dosage: 1 DF, EVERY 8 HRS
  7. ZALDIAR [Concomitant]
     Indication: PAIN
     Dosage: 1 DF, EVERY 8 HOURS IF NEEDED
     Route: 048
  8. SUTRIL [Concomitant]
     Indication: DIURETIC THERAPY
     Dosage: 1 DF, EVERY 24 HOURS ALTERNATING DAYS
     Route: 048

REACTIONS (4)
  - Upper limb fracture [Recovered/Resolved with Sequelae]
  - Upper limb fracture [Unknown]
  - Fall [Unknown]
  - Blood gastrin increased [Unknown]
